FAERS Safety Report 10189823 (Version 1)
Quarter: 2014Q2

REPORT INFORMATION
  Report Type: Spontaneous
  Country: CH (occurrence: CH)
  Receive Date: 20140522
  Receipt Date: 20140522
  Transmission Date: 20141212
  Serious: Yes (Hospitalization)
  Sender: FDA-Public Use
  Company Number: CH-ASTRAZENECA-2014SE34281

PATIENT
  Age: 36 Year
  Sex: Female

DRUGS (30)
  1. NEXIUM [Suspect]
     Indication: GASTROOESOPHAGEAL REFLUX DISEASE
     Route: 048
     Dates: start: 20131205, end: 20131209
  2. NEXIUM [Suspect]
     Indication: GASTROOESOPHAGEAL REFLUX DISEASE
     Route: 048
     Dates: start: 20131210
  3. PRIMPERAN [Suspect]
     Indication: HYPEREMESIS GRAVIDARUM
     Dosage: PRIMPERAN COMPRIMES
     Route: 048
     Dates: start: 20131203, end: 20131213
  4. PRIMPERAN [Suspect]
     Indication: GASTROENTERITIS
     Dosage: PRIMPERAN COMPRIMES
     Route: 048
     Dates: start: 20131203, end: 20131213
  5. PRIMPERAN [Suspect]
     Indication: HYPEREMESIS GRAVIDARUM
     Route: 040
     Dates: start: 20131203, end: 20131207
  6. PRIMPERAN [Suspect]
     Indication: GASTROENTERITIS
     Route: 040
     Dates: start: 20131203, end: 20131207
  7. PRIMPERAN [Suspect]
     Indication: HYPEREMESIS GRAVIDARUM
     Route: 040
     Dates: start: 20140317, end: 20140318
  8. PRIMPERAN [Suspect]
     Indication: GASTROENTERITIS
     Route: 040
     Dates: start: 20140317, end: 20140318
  9. ITINEROL [Suspect]
     Indication: HYPEREMESIS GRAVIDARUM
     Dosage: 20 MG/50 MG/50 MG
     Route: 054
     Dates: start: 20131203, end: 201401
  10. ITINEROL [Suspect]
     Indication: GASTROENTERITIS
     Dosage: 20 MG/50 MG/50 MG
     Route: 054
     Dates: start: 20131203, end: 201401
  11. ITINEROL [Suspect]
     Indication: HYPEREMESIS GRAVIDARUM
     Dosage: 20 MG/50 MG/50 MG, 3 PER 1 DAY(S)
     Route: 054
     Dates: start: 20140317, end: 20140319
  12. ITINEROL [Suspect]
     Indication: GASTROENTERITIS
     Dosage: 20 MG/50 MG/50 MG, 3 PER 1 DAY(S)
     Route: 054
     Dates: start: 20140317, end: 20140319
  13. PANTOZOL [Suspect]
     Indication: GASTROOESOPHAGEAL REFLUX DISEASE
     Route: 048
     Dates: start: 20131203, end: 20131204
  14. CLEXANE [Suspect]
     Indication: THROMBOSIS PROPHYLAXIS
     Route: 058
     Dates: start: 20131203, end: 20131208
  15. SOLU MEDROL [Suspect]
     Indication: PROPHYLAXIS
     Route: 041
     Dates: start: 20130317, end: 20130319
  16. SANDIMMUN NEORAL [Concomitant]
     Indication: RENAL TRANSPLANT
     Dosage: LONG TERM
     Route: 048
  17. PREDNISON [Concomitant]
     Indication: RENAL TRANSPLANT
     Route: 048
  18. CALCIMAGON D3 [Concomitant]
     Indication: OSTEOPOROSIS
     Route: 048
  19. NORVASC [Concomitant]
     Indication: HYPERTENSION
     Route: 048
  20. ASPIRIN CARDIO [Concomitant]
     Indication: PROPHYLAXIS
     Route: 048
     Dates: start: 20131029
  21. ELEVIT PRONATAL [Concomitant]
     Indication: PREGNANCY
     Route: 048
     Dates: start: 20131029, end: 20140110
  22. BURGERSTEIN PREGNANCY AND NURSING [Concomitant]
     Indication: PROPHYLAXIS
     Route: 048
     Dates: start: 20140110
  23. VI-DE 3 [Concomitant]
     Indication: PROPHYLAXIS
     Dates: start: 20131125
  24. BENERVA [Concomitant]
     Indication: HYPEREMESIS GRAVIDARUM
     Route: 048
     Dates: start: 20131203, end: 20131203
  25. DAFALGAN [Concomitant]
     Indication: PAIN
     Route: 048
     Dates: start: 20131208, end: 20131208
  26. VALVERDE [Concomitant]
     Indication: NERVOUSNESS
     Dates: start: 20131208, end: 20131208
  27. ECOFENAC [Concomitant]
     Indication: PAIN
     Dosage: FOUR TIMES A DAY
     Route: 061
     Dates: start: 20131208, end: 20131208
  28. ZOFRAN [Concomitant]
     Indication: VOMITING
     Route: 040
     Dates: start: 20140317, end: 20140317
  29. CELESTONE CHRONODOSE [Concomitant]
     Indication: PROPHYLAXIS
     Route: 040
     Dates: start: 20140411, end: 20140412
  30. GYNO-TARDYFERON [Concomitant]
     Indication: IRON DEFICIENCY
     Dosage: TWICE DAILY
     Route: 048
     Dates: start: 20140411

REACTIONS (4)
  - Exposure during pregnancy [Recovering/Resolving]
  - Gastroenteritis [None]
  - Alanine aminotransferase increased [Recovering/Resolving]
  - Aspartate aminotransferase increased [Recovering/Resolving]
